FAERS Safety Report 5362836-2 (Version None)
Quarter: 2007Q2

REPORT INFORMATION
  Report Type: 
  Country: None (occurrence: None)
  Receive Date: 20070619
  Receipt Date: 20070607
  Transmission Date: 20071010
  Serious: No
  Sender: FDA-Public Use
  Company Number: BR-PFIZER INC-2007049375

PATIENT
  Age: 42 Year
  Sex: Male

DRUGS (2)
  1. VIRACEPT [Suspect]
     Indication: HIV INFECTION
     Route: 048
  2. BIOVIR [Concomitant]
     Indication: HIV INFECTION

REACTIONS (1)
  - OSTEONECROSIS [None]
